FAERS Safety Report 18047522 (Version 2)
Quarter: 2020Q3

REPORT INFORMATION
  Report Type: Spontaneous
  Country: US (occurrence: US)
  Receive Date: 20200721
  Receipt Date: 20200728
  Transmission Date: 20201103
  Serious: Yes (Hospitalization)
  Sender: FDA-Public Use
  Company Number: US-ROCHE-2645424

PATIENT
  Age: 38 Year
  Sex: Male

DRUGS (1)
  1. PULMOZYME [Suspect]
     Active Substance: DORNASE ALFA
     Indication: PRODUCT USED FOR UNKNOWN INDICATION
     Dosage: PULMOZYME NEB 1MG/ML
     Route: 055

REACTIONS (2)
  - Pyrexia [Unknown]
  - Aspergillus infection [Unknown]

NARRATIVE: CASE EVENT DATE: 20200525
